FAERS Safety Report 10516779 (Version 4)
Quarter: 2015Q1

REPORT INFORMATION
  Report Type: Report from Study
  Country: CA (occurrence: CA)
  Receive Date: 20141014
  Receipt Date: 20150120
  Transmission Date: 20150720
  Serious: Yes (Hospitalization, Other)
  Sender: FDA-Public Use
  Company Number: CA-GLAXOSMITHKLINE-B1025247A

PATIENT
  Age: 32 Year
  Sex: Male

DRUGS (6)
  1. TYLENOL [Concomitant]
     Active Substance: ACETAMINOPHEN
     Dosage: 1000 MG, QID
     Dates: start: 20140807, end: 20140809
  2. MEDI4736 [Suspect]
     Active Substance: DURVALUMAB
     Dosage: 10 MG/KG, CYC
     Dates: start: 20140904
  3. ADVIL [Concomitant]
     Active Substance: IBUPROFEN
  4. TRAMETINIB [Suspect]
     Active Substance: TRAMETINIB
     Indication: MALIGNANT MELANOMA
     Dosage: 2 MG, UNK
     Route: 048
     Dates: start: 20140709, end: 20140808
  5. MEDI4736 [Suspect]
     Active Substance: DURVALUMAB
     Indication: MALIGNANT MELANOMA
     Dosage: 10 MG/KG, CYC
     Route: 042
     Dates: start: 20140709, end: 20140808
  6. DABRAFENIB [Suspect]
     Active Substance: DABRAFENIB
     Indication: MALIGNANT MELANOMA
     Dosage: 150 MG, UNK
     Route: 048
     Dates: start: 20140709, end: 20140808

REACTIONS (1)
  - Multi-organ failure [Recovered/Resolved]

NARRATIVE: CASE EVENT DATE: 20140808
